FAERS Safety Report 4728284-0 (Version None)
Quarter: 2005Q3

REPORT INFORMATION
  Report Type: 
  Country: None (occurrence: None)
  Receive Date: 20050727
  Receipt Date: 20050714
  Transmission Date: 20060218
  Serious: Yes (Disabling, Other)
  Sender: FDA-Public Use
  Company Number: 2005US000935

PATIENT
  Age: 48 Year
  Sex: Male

DRUGS (3)
  1. PROGRAF [Suspect]
     Indication: PROPHYLAXIS AGAINST TRANSPLANT REJECTION
  2. MYCOPHENOLATE MOFETIL [Concomitant]
  3. CORTICOSTEROIDS [Concomitant]

REACTIONS (7)
  - COGNITIVE DISORDER [None]
  - DRUG LEVEL INCREASED [None]
  - ENCEPHALITIS VIRAL [None]
  - NERVOUS SYSTEM DISORDER [None]
  - RENAL FAILURE [None]
  - THERAPY NON-RESPONDER [None]
  - WEST NILE VIRAL INFECTION [None]
